FAERS Safety Report 7275810-6 (Version None)
Quarter: 2011Q1

REPORT INFORMATION
  Report Type: 
  Country: None (occurrence: None)
  Receive Date: 20110204
  Receipt Date: 20110127
  Transmission Date: 20110831
  Serious: Yes (Death, Hospitalization)
  Sender: FDA-Public Use
  Company Number: ES-CELGENEUS-144-50794-11011259

PATIENT
  Age: 75 Year
  Sex: Female

DRUGS (12)
  1. SUTRIL [Concomitant]
     Route: 065
  2. DITROPAN [Concomitant]
     Route: 065
  3. SOMAZINE [Concomitant]
     Route: 065
  4. VIDAZA [Suspect]
     Route: 058
     Dates: start: 20101211
  5. ALENDRONIC ACID [Concomitant]
     Route: 065
  6. PLAVIX [Concomitant]
     Route: 065
  7. CODIOVAN [Concomitant]
     Route: 065
  8. LORAZEPAM [Concomitant]
     Route: 048
  9. DOXIUM [Concomitant]
     Route: 065
  10. ALLOPURINOL [Concomitant]
     Route: 065
  11. ATORVASTATIN CALCIUM [Concomitant]
     Route: 065
  12. PARACETAMOL [Concomitant]
     Route: 065

REACTIONS (2)
  - HEPATITIS CHOLESTATIC [None]
  - HEPATITIS TOXIC [None]
